FAERS Safety Report 5276746-2 (Version None)
Quarter: 2007Q1

REPORT INFORMATION
  Report Type: 
  Country: None (occurrence: None)
  Receive Date: 20070327
  Receipt Date: 20070315
  Transmission Date: 20070707
  Serious: Yes (Hospitalization)
  Sender: FDA-Public Use
  Company Number: PHHO2007FR04868

PATIENT
  Age: 55 Year
  Sex: Male

DRUGS (3)
  1. NEORAL [Suspect]
     Indication: RENAL TRANSPLANT
     Dosage: 300 MG
     Dates: start: 20070205
  2. CORTANCYL [Concomitant]
     Indication: RENAL TRANSPLANT
     Dosage: 7.5 MG
     Dates: start: 20070213
  3. CELLCEPT [Concomitant]
     Indication: RENAL TRANSPLANT
     Dosage: 2 G
     Dates: start: 20061123

REACTIONS (1)
  - PROTEINURIA [None]
